FAERS Safety Report 23668599 (Version 1)
Quarter: 2024Q1

REPORT INFORMATION
  Report Type: Spontaneous
  Country: MX (occurrence: MX)
  Receive Date: 20240325
  Receipt Date: 20240325
  Transmission Date: 20240410
  Serious: Yes (Other)
  Sender: FDA-Public Use
  Company Number: MX-PFIZER INC-202400068677

PATIENT
  Age: 68 Year
  Sex: Female

DRUGS (1)
  1. SUTENT [Suspect]
     Active Substance: SUNITINIB MALATE
     Dosage: UNK
     Dates: start: 202401

REACTIONS (6)
  - Blood pressure increased [Unknown]
  - Headache [Unknown]
  - Burning sensation [Unknown]
  - Yellow skin [Unknown]
  - Oral disorder [Unknown]
  - Malaise [Unknown]
